FAERS Safety Report 4375016-4 (Version None)
Quarter: 2004Q2

REPORT INFORMATION
  Report Type: 
  Country: None (occurrence: None)
  Receive Date: 20040604
  Receipt Date: 20040528
  Transmission Date: 20050107
  Serious: Yes (Hospitalization, Other)
  Sender: FDA-Public Use
  Company Number: FRWYE791301JUN04

PATIENT
  Age: 99 Year
  Sex: Female

DRUGS (2)
  1. OXAZEPAM [Suspect]
     Dosage: 10 MG 1X PER 1 DAY  ORAL
     Route: 048
  2. FUROSEMIDE [Suspect]
     Dosage: 40 MG 3X PER 1 WK  ORAL
     Route: 048

REACTIONS (8)
  - ANOREXIA [None]
  - ASTHENIA [None]
  - CARDIAC FAILURE [None]
  - CONDITION AGGRAVATED [None]
  - EYE DISORDER [None]
  - HYPONATRAEMIA [None]
  - HYPOTONIA [None]
  - RENAL FAILURE [None]
